FAERS Safety Report 5910610-8 (Version None)
Quarter: 2008Q4

REPORT INFORMATION
  Report Type: 
  Country: None (occurrence: None)
  Receive Date: 20081007
  Receipt Date: 20081001
  Transmission Date: 20090506
  Serious: Yes (Death)
  Sender: FDA-Public Use
  Company Number: BR-ABBOTT-08P-020-0476493-00

PATIENT
  Sex: Female
  Weight: 74 kg

DRUGS (3)
  1. HUMIRA [Suspect]
     Indication: RHEUMATOID ARTHRITIS
     Route: 058
     Dates: start: 20060101, end: 20070401
  2. UNKNOWN MEDICATION [Concomitant]
     Indication: HYPERTENSION
     Route: 065
  3. UNKNOWN MEDICATION [Concomitant]
     Indication: HEART RATE IRREGULAR

REACTIONS (9)
  - ABDOMINAL DISCOMFORT [None]
  - ACUTE RESPIRATORY FAILURE [None]
  - BREAST CANCER [None]
  - CORONARY ARTERY BYPASS [None]
  - METASTASES TO CENTRAL NERVOUS SYSTEM [None]
  - METASTASES TO LIVER [None]
  - METASTASES TO LUNG [None]
  - RESPIRATORY TRACT INFECTION [None]
  - WEIGHT INCREASED [None]
